FAERS Safety Report 4657582-4 (Version None)
Quarter: 2005Q2

REPORT INFORMATION
  Report Type: 
  Country: None (occurrence: None)
  Receive Date: 20050509
  Receipt Date: 20050509
  Transmission Date: 20051028
  Serious: Yes (Death)
  Sender: FDA-Public Use
  Company Number: None

PATIENT
  Age: 49 Year
  Sex: Male
  Weight: 119.7496 kg

DRUGS (1)
  1. OXYCONTIN [Suspect]
     Indication: BACK PAIN

REACTIONS (1)
  - DRUG TOXICITY [None]
